FAERS Safety Report 22168093 (Version 5)
Quarter: 2023Q4

REPORT INFORMATION
  Report Type: Spontaneous
  Country: CO (occurrence: CO)
  Receive Date: 20230403
  Receipt Date: 20231219
  Transmission Date: 20240110
  Serious: Yes (Other)
  Sender: FDA-Public Use
  Company Number: CO-SA-SAC20220727001163

PATIENT

DRUGS (8)
  1. LARONIDASE [Suspect]
     Active Substance: LARONIDASE
     Indication: Mucopolysaccharidosis I
     Dosage: 10 DF (VIALS), QW
     Route: 042
     Dates: start: 20080117
  2. TRIUMEQ [Concomitant]
     Active Substance: ABACAVIR SULFATE\DOLUTEGRAVIR SODIUM\LAMIVUDINE
     Indication: HIV infection
     Dosage: UNK UNK, QD (7PM)
     Route: 065
  3. ABACAVIR [Concomitant]
     Active Substance: ABACAVIR
     Indication: HIV infection
     Dosage: 1 DF, QD 7 PM.
  4. DOLUTEGRAVIR [Concomitant]
     Active Substance: DOLUTEGRAVIR
     Indication: HIV infection
     Dosage: 1 DF, QD 7 PM.
  5. LAMIVUDINE [Concomitant]
     Active Substance: LAMIVUDINE
     Indication: HIV infection
     Dosage: 1 DF, QD 7 PM.
  6. LUMIGAN [Concomitant]
     Active Substance: BIMATOPROST
     Indication: Product used for unknown indication
     Dosage: ONE DROP EVERY NIGHT
  7. BRIMONIDINE TARTRATE\DORZOLAMIDE HYDROCHLORIDE\TIMOLOL MALEATE [Concomitant]
     Active Substance: BRIMONIDINE TARTRATE\DORZOLAMIDE HYDROCHLORIDE\TIMOLOL MALEATE
     Indication: Product used for unknown indication
     Dosage: 3 TIMES A DAY
  8. GLAUCOMED [Concomitant]
     Indication: Glaucoma
     Dosage: 3 DF, TID

REACTIONS (8)
  - Cataract [Recovering/Resolving]
  - Corneal opacity [Recovered/Resolved]
  - Eye swelling [Recovering/Resolving]
  - Intraocular pressure increased [Recovering/Resolving]
  - Inflammation [Recovering/Resolving]
  - Vision blurred [Recovering/Resolving]
  - Visual impairment [Unknown]
  - Sinusitis [Recovering/Resolving]

NARRATIVE: CASE EVENT DATE: 20220101
